FAERS Safety Report 7344994-3 (Version None)
Quarter: 2011Q1

REPORT INFORMATION
  Report Type: 
  Country: None (occurrence: None)
  Receive Date: 20110302
  Receipt Date: 20110215
  Transmission Date: 20110831
  Serious: Yes (Hospitalization)
  Sender: FDA-Public Use
  Company Number: DSJ-2011-03172

PATIENT
  Age: 7 Decade
  Sex: Female

DRUGS (2)
  1. TRICHLORMETHIAZIDE [Suspect]
     Indication: PRODUCT USED FOR UNKNOWN INDICATION
     Dates: end: 20110212
  2. OLMESARTAN MEDOXOMIL [Suspect]
     Indication: HYPERTENSION
     Dosage: 20 MG, PER ORAL
     Route: 048
     Dates: end: 20110212

REACTIONS (3)
  - ANAEMIA [None]
  - ACTIVITIES OF DAILY LIVING IMPAIRED [None]
  - HYPONATRAEMIA [None]
